FAERS Safety Report 9919035 (Version 1)
Quarter: 2014Q1

REPORT INFORMATION
  Report Type: Spontaneous
  Country: US (occurrence: US)
  Receive Date: 20140224
  Receipt Date: 20140224
  Transmission Date: 20141002
  Serious: No
  Sender: FDA-Public Use
  Company Number: US-BRISTOL-MYERS SQUIBB COMPANY-18704692

PATIENT
  Age: 27 Year
  Sex: Female

DRUGS (5)
  1. METFORMIN HCL [Suspect]
  2. LISINOPRIL [Suspect]
  3. PENICILLIN [Suspect]
  4. ALDACTONE [Concomitant]
     Dosage: DOSE: 1.5 DAILY
     Route: 048
  5. GLUCOTROL [Concomitant]
     Dosage: DOSE: 1/2 DAILY
     Route: 048

REACTIONS (1)
  - Drug hypersensitivity [Unknown]
